FAERS Safety Report 7341809-4 (Version None)
Quarter: 2011Q1

REPORT INFORMATION
  Report Type: 
  Country: None (occurrence: None)
  Receive Date: 20110309
  Receipt Date: 20110307
  Transmission Date: 20110831
  Serious: Yes (Death, Life-Threatening, Hospitalization)
  Sender: FDA-Public Use
  Company Number: ID-BAYER-201023748GPV

PATIENT
  Sex: Female
  Weight: 40 kg

DRUGS (36)
  1. LAXADINE [Concomitant]
     Dosage: 45 ML (DAILY DOSE), , ORAL
     Route: 048
     Dates: start: 20100430, end: 20100505
  2. UNCODEABLE ^UNCLASSIFIABLE^ [Concomitant]
     Dosage: 3 MG (DAILY DOSE), , INTRAVENOUS
     Route: 042
     Dates: start: 20100504, end: 20100505
  3. CEDOCARD [Concomitant]
     Dosage: 7.5 MG (DAILY DOSE), , ORAL
     Route: 048
     Dates: start: 20100504, end: 20100505
  4. LEVOFLOXACIN [Concomitant]
     Dosage: 1000 MG (DAILY DOSE), , INTRAVENOUS
     Route: 042
     Dates: start: 20100429, end: 20100429
  5. UNCODEABLE ^UNCLASSIFIABLE^ [Concomitant]
     Dosage: 80 MG (DAILY DOSE), , INTRAVENOUS
     Route: 042
     Dates: start: 20100501, end: 20100505
  6. UNCODEABLE ^UNCLASSIFIABLE^ [Concomitant]
     Dosage: 250 ML (DAILY DOSE), , INTRAVENOUS
     Route: 042
     Dates: start: 20100504, end: 20100504
  7. CAPTOPRIL [Concomitant]
     Dosage: 6.25 MG (DAILY DOSE), , ORAL
     Route: 048
     Dates: start: 20100504, end: 20100505
  8. SORAFENIB (RAF KINASE INHIBITOR) [Suspect]
     Indication: NON-SMALL CELL LUNG CANCER
     Dosage: 400 MG (DAILY DOSE), QD, ORAL
     Route: 048
     Dates: start: 20100417, end: 20100427
  9. SORAFENIB (RAF KINASE INHIBITOR) [Suspect]
     Dosage: UNK
     Dates: start: 20100504
  10. CEFTRIAXONE [Concomitant]
     Dosage: 2000 MG (DAILY DOSE), , INTRAVENOUS
     Route: 042
     Dates: start: 20100426, end: 20100429
  11. ELECTROLYTES WITH CARBOHYDRATES [Concomitant]
     Dosage: 1000 ML (DAILY DOSE), , INTRAVENOUS
     Route: 042
     Dates: start: 20100430, end: 20100505
  12. MEDIXON [Concomitant]
     Dosage: 250 MG (DAILY DOSE), , INTRAVENOUS
     Route: 042
     Dates: start: 20100429, end: 20100430
  13. MEDIXON [Concomitant]
     Dosage: 325 MG (DAILY DOSE), , INTRAVENOUS
     Route: 042
     Dates: start: 20100501, end: 20100505
  14. MAGNESIUM SULFATE [Concomitant]
     Dosage: IN NORMAL SALINE 0.9%
     Route: 042
     Dates: start: 20100430, end: 20100505
  15. UNCODEABLE ^UNCLASSIFIABLE^ [Concomitant]
     Dosage: 9 MG (DAILY DOSE), , INTRAVENOUS
     Route: 042
     Dates: start: 20100502, end: 20100503
  16. ATROPINE [Concomitant]
     Dosage: 1 AMPULE
     Route: 042
     Dates: start: 20100501, end: 20100501
  17. BISOLVON [Concomitant]
     Dosage: 3 AMPULE
     Route: 055
     Dates: start: 20100429, end: 20100430
  18. VENTOLIN [Concomitant]
     Dosage: 3 AMPULE
     Route: 055
     Dates: start: 20100429, end: 20100430
  19. TRIOFUSIN [CARBOHYDRATES NOS] [Concomitant]
     Dosage: 1000 ML (DAILY DOSE), , INTRAVENOUS
     Route: 042
     Dates: start: 20100501, end: 20100501
  20. CORDARONE [Concomitant]
     Dosage: 150 MG (DAILY DOSE), , INTRAVENOUS
     Route: 042
     Dates: start: 20100430, end: 20100505
  21. UNCODEABLE ^UNCLASSIFIABLE^ [Concomitant]
     Dosage: 3 DF (DAILY DOSE), , ORAL
     Route: 048
     Dates: start: 20100503, end: 20100505
  22. UNCODEABLE ^UNCLASSIFIABLE^ [Concomitant]
     Dosage: 38 ?G (DAILY DOSE), , INTRAVENOUS
     Route: 042
     Dates: start: 20100501, end: 20100501
  23. CALCIUM GLUCONATE [Concomitant]
     Dosage: 1 AMPULE
     Route: 042
     Dates: start: 20100430, end: 20100505
  24. DIGOXIN [Concomitant]
     Dosage: 0.25 MG (DAILY DOSE), , ORAL
     Route: 048
     Dates: start: 20100503, end: 20100505
  25. ADRENALINE [Concomitant]
     Dosage: 1 AMPULE
     Route: 042
     Dates: start: 20100501, end: 20100501
  26. MEDIXON [Concomitant]
     Dosage: 325 MG (DAILY DOSE), , INTRAVENOUS
     Route: 042
     Dates: start: 20100501, end: 20100505
  27. CITICOLINE [Concomitant]
     Dosage: 1000 MG (DAILY DOSE), , INTRAVENOUS
     Route: 042
     Dates: start: 20100427, end: 20100505
  28. AMINOPHYLLINE [Concomitant]
     Dosage: 2 AMPS
     Route: 042
     Dates: start: 20100429, end: 20100505
  29. UNCODEABLE ^UNCLASSIFIABLE^ [Concomitant]
     Dosage: 300 ML (DAILY DOSE), , INTRAVENOUS
     Route: 042
     Dates: start: 20100503, end: 20100503
  30. BISOLVON [Concomitant]
     Dosage: 4 AMPULE
     Route: 055
     Dates: start: 20100501, end: 20100505
  31. MAINTATE [Concomitant]
     Dosage: 1.25 MG (DAILY DOSE), , ORAL
     Route: 048
     Dates: start: 20100504, end: 20100505
  32. UNCODEABLE ^UNCLASSIFIABLE^ [Concomitant]
     Dosage: 7.6 ?G (DAILY DOSE), , INTRAVENOUS
     Route: 042
     Dates: start: 20100503, end: 20100505
  33. VENTOLIN [Concomitant]
     Dosage: 4 AMPULE
     Route: 055
     Dates: start: 20100501, end: 20100505
  34. TRIOFUSIN [CARBOHYDRATES NOS] [Concomitant]
     Dosage: 1000 ML (DAILY DOSE), , INTRAVENOUS
     Route: 042
     Dates: start: 20100429, end: 20100430
  35. UNCODEABLE ^UNCLASSIFIABLE^ [Concomitant]
     Dosage: 200 ML (DAILY DOSE), , INTRAVENOUS
     Route: 042
     Dates: start: 20100504, end: 20100504
  36. UNCODEABLE ^UNCLASSIFIABLE^ [Concomitant]
     Dosage: 22.8 ?G (DAILY DOSE), , INTRAVENOUS
     Route: 042
     Dates: start: 20100501, end: 20100502

REACTIONS (3)
  - APNOEA [None]
  - SEPSIS [None]
  - VOMITING [None]
